FAERS Safety Report 4437088-8 (Version None)
Quarter: 2004Q3

REPORT INFORMATION
  Report Type: 
  Country: None (occurrence: None)
  Receive Date: 20040827
  Receipt Date: 20040814
  Transmission Date: 20050211
  Serious: Yes (Hospitalization, Other)
  Sender: FDA-Public Use
  Company Number: 2004043072

PATIENT
  Age: 61 Year
  Sex: Male

DRUGS (8)
  1. VIAGRA [Suspect]
     Indication: ERECTILE DYSFUNCTION
     Dosage: 25 MG (25 MG, AS NEEDED), ORAL
     Route: 048
  2. DILANTIN [Suspect]
     Indication: BRAIN NEOPLASM
     Dosage: 300 MG (100 MG, 1 IN 1 D), ORAL
     Route: 048
     Dates: start: 20031201
  3. CIPROFLOXACIN [Concomitant]
  4. ARGININE (ARGININE) [Concomitant]
  5. DEXAMETHASONE [Concomitant]
  6. CENTRUM SILVER (ASCORBIC ACID, CALCIUM, MINERALS NOS, RETINOL, TOCOPHE [Concomitant]
  7. SERENOA REPENS (SERENOA REPENS) [Concomitant]
  8. TOCOPHEROL CONCENTRATE CAP [Concomitant]

REACTIONS (10)
  - ANORGASMIA [None]
  - BALANCE DISORDER [None]
  - DRUG INEFFECTIVE [None]
  - FATIGUE [None]
  - GLIOBLASTOMA [None]
  - LETHARGY [None]
  - MEMORY IMPAIRMENT [None]
  - TREATMENT NONCOMPLIANCE [None]
  - VISUAL DISTURBANCE [None]
  - WEIGHT DECREASED [None]
